FAERS Safety Report 10044549 (Version 2)
Quarter: 2014Q2

REPORT INFORMATION
  Report Type: Spontaneous
  Country: JP (occurrence: JP)
  Receive Date: 20140328
  Receipt Date: 20140417
  Transmission Date: 20141212
  Serious: Yes (Other)
  Sender: FDA-Public Use
  Company Number: JP-PFIZER INC-2014086182

PATIENT
  Sex: Female

DRUGS (1)
  1. LYRICA [Suspect]
     Indication: HYPOAESTHESIA
     Dosage: 75 MG, 2X/DAY
     Route: 048

REACTIONS (3)
  - Cerebral infarction [Unknown]
  - Cerebrovascular stenosis [Unknown]
  - Hypoaesthesia [Unknown]
